FAERS Safety Report 7982229-9 (Version None)
Quarter: 2011Q4

REPORT INFORMATION
  Report Type: 
  Country: None (occurrence: None)
  Receive Date: 20111215
  Receipt Date: 20111215
  Transmission Date: 20120403
  Serious: Yes (Life-Threatening, Hospitalization, Other)
  Sender: FDA-Public Use
  Company Number: None

PATIENT
  Age: 50 Year
  Sex: Female
  Weight: 56.699 kg

DRUGS (1)
  1. TYLENOL (CAPLET) [Suspect]
     Indication: ANALGESIC THERAPY
     Dosage: 1300 MG
     Route: 048
     Dates: start: 20111209, end: 20111211

REACTIONS (3)
  - NAUSEA [None]
  - INAPPROPRIATE SCHEDULE OF DRUG ADMINISTRATION [None]
  - MEDICATION ERROR [None]
